FAERS Safety Report 6508832-0 (Version None)
Quarter: 2009Q4

REPORT INFORMATION
  Report Type: 
  Country: None (occurrence: None)
  Receive Date: 20091221
  Receipt Date: 20090814
  Transmission Date: 20100525
  Serious: No
  Sender: FDA-Public Use
  Company Number: US-ASTRAZENECA-2009SE08137

PATIENT
  Age: 79 Year
  Sex: Male

DRUGS (8)
  1. CRESTOR [Suspect]
     Route: 048
     Dates: start: 20080801, end: 20090601
  2. CRESTOR [Suspect]
     Route: 048
     Dates: start: 20090601
  3. BENICAR [Concomitant]
  4. COUMADIN [Concomitant]
  5. SYNTHROID [Concomitant]
  6. ATENELOL [Concomitant]
  7. ASPIRIN [Concomitant]
  8. Q10 [Concomitant]

REACTIONS (2)
  - BLOOD CREATININE INCREASED [None]
  - INTERNATIONAL NORMALISED RATIO FLUCTUATION [None]
